FAERS Safety Report 24799767 (Version 1)
Quarter: 2025Q1

REPORT INFORMATION
  Report Type: Spontaneous
  Country: US (occurrence: US)
  Receive Date: 20250102
  Receipt Date: 20250102
  Transmission Date: 20250408
  Serious: No
  Sender: SANOFI AVENTIS
  Company Number: US-SA-2024SA384955

PATIENT
  Age: 73 Year
  Sex: Male

DRUGS (1)
  1. REZUROCK [Suspect]
     Active Substance: BELUMOSUDIL
     Indication: Graft versus host disease
     Dosage: 200 MG, QD
     Route: 048
     Dates: start: 20241207

REACTIONS (9)
  - Myalgia [Unknown]
  - Bone pain [Unknown]
  - Oropharyngeal pain [Unknown]
  - Rhinorrhoea [Unknown]
  - Hypertension [Unknown]
  - Fatigue [Unknown]
  - Muscle spasms [Unknown]
  - Nausea [Unknown]
  - Cough [Unknown]
